FAERS Safety Report 22299290 (Version 1)
Quarter: 2023Q2

REPORT INFORMATION
  Report Type: Spontaneous
  Country: US (occurrence: None)
  Receive Date: 20230508
  Receipt Date: 20230508
  Transmission Date: 20230721
  Serious: Yes (Other)
  Sender: FDA-Public Use
  Company Number: None

PATIENT
  Age: 79 Year
  Sex: Male
  Weight: 88.3 kg

DRUGS (9)
  1. AMIODARONE [Suspect]
     Active Substance: AMIODARONE
     Dosage: FREQUENCY : DAILY;?
     Route: 048
     Dates: start: 20221206, end: 20221216
  2. allopurinol 30 mg [Concomitant]
  3. CLOPIDOGREL [Concomitant]
     Active Substance: CLOPIDOGREL BISULFATE
  4. METFORMIN [Concomitant]
     Active Substance: METFORMIN HYDROCHLORIDE
  5. METOPROLOL SUCCINATE [Concomitant]
     Active Substance: METOPROLOL SUCCINATE
  6. potassium chloride 20 mEq [Concomitant]
  7. ROSUVASTATIN [Concomitant]
     Active Substance: ROSUVASTATIN
  8. sacubitril-valsartan 24-26 mg [Concomitant]
  9. torsemide 20 mg [Concomitant]

REACTIONS (7)
  - Peripheral swelling [None]
  - Hypoaesthesia [None]
  - Vision blurred [None]
  - Hypoacusis [None]
  - Photosensitivity reaction [None]
  - Anxiety [None]
  - Quality of life decreased [None]

NARRATIVE: CASE EVENT DATE: 20221218
